FAERS Safety Report 5418487-4 (Version None)
Quarter: 2007Q3

REPORT INFORMATION
  Report Type: 
  Country: None (occurrence: None)
  Receive Date: 20070718
  Receipt Date: 20060727
  Transmission Date: 20080115
  Serious: Yes (Hospitalization)
  Sender: FDA-Public Use
  Company Number: 2006093222

PATIENT
  Age: 52 Year
  Sex: Male
  Weight: 68.0396 kg

DRUGS (1)
  1. CELEBREX [Suspect]
     Indication: ARTHRITIS
     Dosage: 200 MG (200 MG, 1 IN 1 D)
     Dates: start: 20000116, end: 20021215

REACTIONS (5)
  - CHEST PAIN [None]
  - DEPRESSION [None]
  - FATIGUE [None]
  - MYOCARDIAL INFARCTION [None]
  - PANIC ATTACK [None]
